FAERS Safety Report 6131969-5 (Version None)
Quarter: 2009Q1

REPORT INFORMATION
  Report Type: 
  Country: None (occurrence: None)
  Receive Date: 20090323
  Receipt Date: 20090310
  Transmission Date: 20090719
  Serious: Yes (Hospitalization)
  Sender: FDA-Public Use
  Company Number: DEP_00245_2009

PATIENT
  Age: 78 Year
  Sex: Female
  Weight: 56 kg

DRUGS (2)
  1. CIPROFLOXACIN [Suspect]
     Indication: BRONCHITIS
     Dosage: (750 MG BID)/A FEW DAYS
  2. ENZYME INHIBITORS (ANGIOTENSIN-CONVERTING ENZYME INHIBITOR) [Suspect]
     Indication: DRUG USE FOR UNKNOWN INDICATION
     Dosage: (DF)

REACTIONS (4)
  - BRONCHITIS [None]
  - NEPHROPATHY [None]
  - RENAL FAILURE ACUTE [None]
  - RENAL TUBULAR DISORDER [None]
